FAERS Safety Report 15868945 (Version 1)
Quarter: 2019Q1

REPORT INFORMATION
  Report Type: Spontaneous
  Country: US (occurrence: US)
  Receive Date: 20190125
  Receipt Date: 20190125
  Transmission Date: 20190417
  Serious: Yes (Life-Threatening, Hospitalization)
  Sender: FDA-Public Use
  Company Number: None

PATIENT
  Age: 75 Year
  Sex: Male
  Weight: 90.9 kg

DRUGS (2)
  1. RIVAROXABAN [Suspect]
     Active Substance: RIVAROXABAN
     Route: 048
  2. ASPIRIN 81MG [Concomitant]
     Active Substance: ASPIRIN

REACTIONS (4)
  - Drug ineffective [None]
  - Aphasia [None]
  - Peripheral embolism [None]
  - Cerebral artery embolism [None]

NARRATIVE: CASE EVENT DATE: 20190119
